FAERS Safety Report 5394146-1 (Version None)
Quarter: 2007Q3

REPORT INFORMATION
  Report Type: 
  Country: None (occurrence: None)
  Receive Date: 20070723
  Receipt Date: 20070717
  Transmission Date: 20080115
  Serious: Yes (Hospitalization)
  Sender: FDA-Public Use
  Company Number: IL-ROCHE-507415

PATIENT
  Age: 55 Year
  Sex: Male

DRUGS (6)
  1. MYCOPHENOLATE MOFETIL [Suspect]
     Route: 065
     Dates: start: 20010501
  2. TACROLIMUS [Suspect]
     Route: 065
     Dates: start: 20010501
  3. TACROLIMUS [Suspect]
     Dosage: TO OBTAIN BLOOD LEVEL OF 4 TO 5 NG/ML
     Route: 065
  4. PREDNISONE [Suspect]
     Route: 065
     Dates: start: 20010501
  5. PREDNISONE [Suspect]
     Dosage: DOSAGE DECREASED
     Route: 065
  6. ANTICOAGULANT NOS [Concomitant]

REACTIONS (2)
  - PROGRESSIVE MULTIFOCAL LEUKOENCEPHALOPATHY [None]
  - PULMONARY EMBOLISM [None]
